FAERS Safety Report 13442780 (Version 1)
Quarter: 2017Q2

REPORT INFORMATION
  Report Type: Spontaneous
  Country: NO (occurrence: NO)
  Receive Date: 20170414
  Receipt Date: 20170414
  Transmission Date: 20170830
  Serious: Yes (Death, Hospitalization)
  Sender: FDA-Public Use
  Company Number: NO-SA-2017SA065829

PATIENT
  Age: 45 Year
  Sex: Female

DRUGS (1)
  1. LEMTRADA [Suspect]
     Active Substance: ALEMTUZUMAB
     Indication: MULTIPLE SCLEROSIS
     Route: 042
     Dates: start: 201412, end: 201601

REACTIONS (3)
  - Renal disorder [Unknown]
  - Proteinuria [Unknown]
  - Metastatic gastric cancer [Fatal]

NARRATIVE: CASE EVENT DATE: 201701
